FAERS Safety Report 8020469-3 (Version None)
Quarter: 2012Q1

REPORT INFORMATION
  Report Type: 
  Country: None (occurrence: None)
  Receive Date: 20120103
  Receipt Date: 20111229
  Transmission Date: 20120608
  Serious: Yes (Hospitalization, Other)
  Sender: FDA-Public Use
  Company Number: US-PFIZER INC-2010075632

PATIENT
  Sex: Female
  Weight: 60.771 kg

DRUGS (18)
  1. TOPAMAX [Interacting]
     Indication: CONVULSION
     Dosage: 100 MG, 2X/DAY
  2. ASPIRIN [Concomitant]
     Dosage: 325 MG, 1X/DAY
     Route: 048
  3. XOPENEX [Concomitant]
     Indication: WHEEZING
     Dosage: 0.63 MG/3ML 1 UNIT DOSE EVERY 4 TO 6 HOURS AS NEEDED
     Route: 055
  4. CHANTIX [Interacting]
     Dosage: 0.5 MG, 2X/DAY
     Route: 048
     Dates: start: 20100701, end: 20110701
  5. SINGULAIR [Concomitant]
     Dosage: 10 MG, 1X/DAY
     Route: 048
  6. PROMETHAZINE HCL [Concomitant]
     Dosage: 25MG, EVERY 6 HOURS AS NEEDED
     Route: 048
  7. CHANTIX [Interacting]
     Dosage: 0.5 MG, DAILY
     Route: 048
     Dates: start: 20100519, end: 20100101
  8. MIRAPEX [Concomitant]
     Dosage: 0.125 MG, 1X/DAY
     Route: 048
  9. LORAZEPAM [Concomitant]
     Dosage: 1 MG, 3X/DAY AS NEEDED
     Route: 048
  10. PROPOXYPHENE HCL AND ACETAMINOPHEN [Concomitant]
     Indication: PAIN
     Dosage: 100/650 MG, EVERY 6 HOURS AS NEEDED
     Route: 048
  11. CHANTIX [Interacting]
     Dosage: 1 MG, 2X/DAY
     Route: 048
     Dates: start: 20070101, end: 20070101
  12. TEGRETOL [Suspect]
     Indication: CONVULSION
     Dosage: 200 MG, 3X/DAY
  13. PREMARIN [Concomitant]
     Dosage: 0.9 MG, 1X/DAY
     Route: 048
  14. NABUMETONE [Concomitant]
     Indication: PAIN
     Dosage: 500 MG, 2X/DAY AS NEEDED
     Route: 048
  15. CHANTIX [Interacting]
     Indication: SMOKING CESSATION THERAPY
     Dosage: 0.5 MG, DAILY
     Route: 048
     Dates: start: 20070101, end: 20070101
  16. TOPAMAX [Interacting]
     Indication: EPILEPSY
     Dosage: 200 MG, 2X/DAY
  17. CARISOPRODOL [Concomitant]
     Dosage: 350 MG, 2X/DAY AS NEEDED
     Route: 048
  18. CHANTIX [Interacting]
     Dosage: 1 MG, 2X/DAY
     Route: 048
     Dates: start: 20100101, end: 20100601

REACTIONS (42)
  - DIABETES MELLITUS [None]
  - AORTIC STENOSIS [None]
  - MEMORY IMPAIRMENT [None]
  - FEELING ABNORMAL [None]
  - NICOTINE DEPENDENCE [None]
  - PALPITATIONS [None]
  - ANXIETY DISORDER [None]
  - HALLUCINATION [None]
  - DRUG EFFECT DECREASED [None]
  - CHEST PAIN [None]
  - RESTLESS LEGS SYNDROME [None]
  - VOMITING [None]
  - ABNORMAL BEHAVIOUR [None]
  - MIGRAINE [None]
  - MALNUTRITION [None]
  - RASH [None]
  - INJURY [None]
  - MAJOR DEPRESSION [None]
  - STARVATION [None]
  - AMAUROSIS FUGAX [None]
  - NAUSEA [None]
  - THINKING ABNORMAL [None]
  - BRONCHITIS BACTERIAL [None]
  - OSTEOPENIA [None]
  - DEHYDRATION [None]
  - CEREBROVASCULAR ACCIDENT [None]
  - IMPAIRED DRIVING ABILITY [None]
  - FALL [None]
  - HYPERLIPIDAEMIA [None]
  - VULVOVAGINAL CANDIDIASIS [None]
  - RHINITIS SEASONAL [None]
  - CONVULSION [None]
  - COLONIC STENOSIS [None]
  - GALLBLADDER DISORDER [None]
  - FIBROMYALGIA [None]
  - TREMOR [None]
  - ASTHENIA [None]
  - SUICIDAL IDEATION [None]
  - DRUG INTERACTION [None]
  - BRONCHITIS CHRONIC [None]
  - DRUG INEFFECTIVE [None]
  - GASTROOESOPHAGEAL REFLUX DISEASE [None]
